FAERS Safety Report 8452277-3 (Version None)
Quarter: 2012Q2

REPORT INFORMATION
  Report Type: 
  Country: None (occurrence: None)
  Receive Date: 20120620
  Receipt Date: 20120615
  Transmission Date: 20120825
  Serious: Yes (Death, Hospitalization)
  Sender: FDA-Public Use
  Company Number: DE-ELI_LILLY_AND_COMPANY-DE201205009469

PATIENT
  Age: 77 Year
  Sex: Female

DRUGS (3)
  1. FORTEO [Suspect]
     Indication: OSTEOPOROSIS
     Dosage: UNK, QD
     Route: 058
     Dates: start: 20110524
  2. CORTISONE ACETATE [Concomitant]
  3. ANALGESICS [Concomitant]
     Dosage: UNK, TID

REACTIONS (2)
  - CATHETERISATION CARDIAC [None]
  - RENAL FAILURE [None]
